FAERS Safety Report 6071291-9 (Version None)
Quarter: 2009Q1

REPORT INFORMATION
  Report Type: 
  Country: None (occurrence: None)
  Receive Date: 20090205
  Receipt Date: 20090123
  Transmission Date: 20090719
  Serious: Yes (Death, Other)
  Sender: FDA-Public Use
  Company Number: 2008US003448

PATIENT
  Age: 27 Year
  Sex: Male

DRUGS (13)
  1. PROGRAF [Suspect]
     Indication: HEART TRANSPLANT
     Dosage: 10 MG, BID
     Dates: start: 20070428, end: 20081003
  2. MYFORTIC [Concomitant]
  3. SIROLIMUS (SIROLIMUS) [Concomitant]
  4. PREDNISONE TAB [Concomitant]
  5. BACTRIM [Concomitant]
  6. DILTIAZEM 9DILTIAZEM) [Concomitant]
  7. PROTONIX [Concomitant]
  8. ZOCOR [Concomitant]
  9. LOPRESSOR (METOPROLOL TARTRATE) [Concomitant]
  10. ASPIRIN [Concomitant]
  11. NOVOLOG [Concomitant]
  12. NPH INSULIN [Concomitant]
  13. VITAMIN D (COLECALCIFEROL) [Concomitant]

REACTIONS (7)
  - CARDIAC ARREST [None]
  - CARDIAC FAILURE [None]
  - CARDIAC OUTPUT DECREASED [None]
  - COMPLICATIONS OF TRANSPLANTED HEART [None]
  - EJECTION FRACTION DECREASED [None]
  - HEART TRANSPLANT REJECTION [None]
  - VENTRICULAR DYSFUNCTION [None]
